FAERS Safety Report 15546793 (Version 1)
Quarter: 2018Q4

REPORT INFORMATION
  Report Type: Spontaneous
  Country: US (occurrence: US)
  Receive Date: 20181024
  Receipt Date: 20181024
  Transmission Date: 20190205
  Serious: No
  Sender: FDA-Public Use
  Company Number: None

PATIENT
  Sex: Female

DRUGS (2)
  1. ROSUVASTATIN. [Suspect]
     Active Substance: ROSUVASTATIN
  2. ROSUVASTATIN. [Suspect]
     Active Substance: ROSUVASTATIN

REACTIONS (3)
  - Muscle spasms [None]
  - Pain [None]
  - Angioedema [None]
